FAERS Safety Report 25685168 (Version 3)
Quarter: 2025Q4

REPORT INFORMATION
  Report Type: Spontaneous
  Country: EU (occurrence: EU)
  Receive Date: 20250815
  Receipt Date: 20251128
  Transmission Date: 20260117
  Serious: Yes (Hospitalization, Other)
  Sender: CHEPLAPHARM
  Company Number: EU-CHEPLA-2025009736

PATIENT
  Sex: Male

DRUGS (6)
  1. HYDROXYUREA [Interacting]
     Active Substance: HYDROXYUREA
     Indication: Essential thrombocythaemia
     Dosage: DAILY DOSE: 2 DOSAGE FORM
     Route: 048
     Dates: start: 2014, end: 202504
  2. HYDROXYUREA [Interacting]
     Active Substance: HYDROXYUREA
     Indication: Essential thrombocythaemia
     Dosage: DOSE REDUCED TO 1 CAPSULE PER DAY?DAILY DOSE: 1 DOSAGE FORM
     Dates: start: 2025
  3. HYDROXYUREA [Interacting]
     Active Substance: HYDROXYUREA
     Indication: Essential thrombocythaemia
     Dosage: DAILY DOSE: 1 DOSAGE FORM
     Route: 048
     Dates: start: 202505
  4. KARDEGIC [Interacting]
     Active Substance: ASPIRIN DL-LYSINE
     Indication: Essential thrombocythaemia
     Dosage: IN THE MORNING
     Dates: start: 2014
  5. KARDEGIC [Interacting]
     Active Substance: ASPIRIN DL-LYSINE
     Indication: Essential thrombocythaemia
     Dosage: EVENING
  6. LAMALINE (ACETAMINOPHEN\CAFFEINE\OPIUM) [Suspect]
     Active Substance: ACETAMINOPHEN\CAFFEINE\OPIUM
     Indication: Syncope
     Dosage: DAILY DOSE: 1 DOSAGE FORM

REACTIONS (15)
  - Loose tooth [Recovered/Resolved]
  - Tooth discolouration [Recovered/Resolved]
  - Platelet count increased [Recovered/Resolved]
  - Pancreatitis [Recovered/Resolved]
  - Haematochezia [Recovered/Resolved]
  - Blood urine present [Recovered/Resolved]
  - Anaemia [Unknown]
  - Melaena [Unknown]
  - Type 2 diabetes mellitus [Unknown]
  - Musculoskeletal stiffness [Recovered/Resolved]
  - Vision blurred [Recovered/Resolved]
  - Diarrhoea [Recovered/Resolved]
  - Drug interaction [Recovered/Resolved]
  - Drug ineffective [Recovered/Resolved]
  - Peripheral sensory neuropathy [Unknown]

NARRATIVE: CASE EVENT DATE: 20140101
